FAERS Safety Report 4481723-5 (Version None)
Quarter: 2004Q4

REPORT INFORMATION
  Report Type: 
  Country: None (occurrence: None)
  Receive Date: 20041021
  Receipt Date: 20041012
  Transmission Date: 20050328
  Serious: Yes (Disabling)
  Sender: FDA-Public Use
  Company Number: US-MERCK-0410USA01809

PATIENT
  Age: 47 Year
  Sex: Female

DRUGS (9)
  1. VIOXX [Suspect]
     Indication: ARTHRITIS
     Route: 048
     Dates: start: 19990101, end: 20041001
  2. PLAVIX [Concomitant]
     Route: 065
  3. PREMARIN [Concomitant]
     Route: 065
  4. LEVOTHYROXINE SODIUM [Concomitant]
     Route: 065
  5. CELEXA [Concomitant]
     Route: 065
  6. CARBATROL [Concomitant]
     Route: 065
  7. AGGRENOX [Concomitant]
     Route: 065
  8. CRESTOR [Concomitant]
     Route: 065
  9. LORTAB [Concomitant]
     Route: 065

REACTIONS (2)
  - CEREBROVASCULAR ACCIDENT [None]
  - TRANSIENT ISCHAEMIC ATTACK [None]
